FAERS Safety Report 14973284 (Version 1)
Quarter: 2018Q2

REPORT INFORMATION
  Report Type: Spontaneous
  Country: US (occurrence: US)
  Receive Date: 20180514
  Receipt Date: 20180514
  Transmission Date: 20180711
  Serious: Yes (Death)
  Sender: FDA-Public Use
  Company Number: None

PATIENT
  Age: 43 Year
  Sex: Female
  Weight: 68.4 kg

DRUGS (9)
  1. CITALOPRAM [Concomitant]
     Active Substance: CITALOPRAM HYDROBROMIDE
     Dates: start: 20180124, end: 20180512
  2. DEXTROAMPHET SACCHARAT, AMPHET ASPARTATE, DEXTROAMPHET SULFATE AND AMPHET SULFAT [Concomitant]
     Active Substance: AMPHETAMINE ASPARTATE\AMPHETAMINE SULFATE\DEXTROAMPHETAMINE SACCHARATE\DEXTROAMPHETAMINE SULFATE
     Dates: start: 20180105, end: 20180512
  3. CELECOXIB 200 MG [Concomitant]
     Active Substance: CELECOXIB
     Dates: start: 20180509, end: 20180512
  4. DICLOFENAC 50 MG POWDER (CAMBIA) [Concomitant]
     Dates: start: 20180423, end: 20180512
  5. ALMOTRIPTAN 12.5 MG [Concomitant]
     Active Substance: ALMOTRIPTAN
     Dates: start: 20160602, end: 20180512
  6. ACYCLOVIR 400 MG [Concomitant]
     Active Substance: ACYCLOVIR
     Dates: start: 20180423, end: 20180512
  7. LAMOTRIGINE 100 MG [Concomitant]
     Active Substance: LAMOTRIGINE
     Dates: start: 20180416, end: 20180512
  8. FUROSEMIDE 20 MG [Concomitant]
     Active Substance: FUROSEMIDE
     Dates: start: 20180509, end: 20180512
  9. LEMTRADA [Suspect]
     Active Substance: ALEMTUZUMAB
     Indication: MULTIPLE SCLEROSIS
     Route: 042

REACTIONS (2)
  - Streptococcal sepsis [None]
  - Multiple organ dysfunction syndrome [None]

NARRATIVE: CASE EVENT DATE: 20180430
